FAERS Safety Report 20867087 (Version 1)
Quarter: 2022Q2

REPORT INFORMATION
  Report Type: Spontaneous
  Country: US (occurrence: None)
  Receive Date: 20220523
  Receipt Date: 20220523
  Transmission Date: 20220721
  Serious: No
  Sender: FDA-Public Use
  Company Number: None

PATIENT
  Age: 56 Year
  Sex: Female

DRUGS (1)
  1. ZIPRASIDONE HYDROCHLORIDE [Suspect]
     Active Substance: ZIPRASIDONE HYDROCHLORIDE
     Dosage: 20MG BID ORAL?
     Route: 048
     Dates: start: 202107

REACTIONS (2)
  - Eye pain [None]
  - Feeling abnormal [None]

NARRATIVE: CASE EVENT DATE: 20210808
